FAERS Safety Report 6199833-3 (Version None)
Quarter: 2009Q2

REPORT INFORMATION
  Report Type: 
  Country: None (occurrence: None)
  Receive Date: 20090522
  Receipt Date: 20090519
  Transmission Date: 20091009
  Serious: Yes (Other)
  Sender: FDA-Public Use
  Company Number: US-MEDIMMUNE-MEDI-0008391

PATIENT
  Age: 9 Month
  Sex: Female

DRUGS (5)
  1. SYNAGIS [Suspect]
     Route: 030
     Dates: start: 20080101, end: 20081117
  2. SYNAGIS [Suspect]
     Route: 030
     Dates: start: 20080101
  3. SYNAGIS [Suspect]
     Route: 030
     Dates: start: 20080101
  4. SYNAGIS [Suspect]
     Route: 030
     Dates: start: 20081201
  5. INFLUENZA VACCINE [Concomitant]
     Route: 030
     Dates: start: 20080101, end: 20081117

REACTIONS (3)
  - DYSPNOEA [None]
  - HEART RATE INCREASED [None]
  - URTICARIA [None]
